FAERS Safety Report 7674737-5 (Version None)
Quarter: 2011Q3

REPORT INFORMATION
  Report Type: 
  Country: None (occurrence: None)
  Receive Date: 20110810
  Receipt Date: 20110801
  Transmission Date: 20111222
  Serious: Yes (Death)
  Sender: FDA-Public Use
  Company Number: US-GLAXOSMITHKLINE-A0939802A

PATIENT
  Age: 71 Year
  Sex: Male

DRUGS (10)
  1. PERCOCET [Concomitant]
  2. XALATAN [Concomitant]
  3. VOTRIENT [Suspect]
     Indication: PRODUCT USED FOR UNKNOWN INDICATION
     Dosage: 600MG PER DAY
     Route: 048
  4. ZOFRAN [Concomitant]
  5. SENNA [Concomitant]
  6. METAMUCIL-2 [Concomitant]
  7. LISINOPRIL [Concomitant]
  8. OXYCODONE HCL [Concomitant]
  9. MULTI-VITAMIN [Concomitant]
  10. DULCOLAX [Concomitant]

REACTIONS (1)
  - DEATH [None]
